FAERS Safety Report 20233169 (Version 1)
Quarter: 2021Q4

REPORT INFORMATION
  Report Type: Spontaneous
  Country: US (occurrence: None)
  Receive Date: 20211226
  Receipt Date: 20211226
  Transmission Date: 20220303
  Serious: Yes (Other)
  Sender: FDA-Public Use
  Company Number: None

PATIENT
  Age: 53 Year
  Sex: Female

DRUGS (2)
  1. OLD SPICE PURESPORT [Suspect]
     Active Substance: ALUMINUM CHLOROHYDRATE ANHYDROUS
     Indication: Personal hygiene
     Dates: start: 20180101, end: 20211223
  2. COSMETICS [Suspect]
     Active Substance: COSMETICS

REACTIONS (4)
  - Alopecia [None]
  - Alopecia [None]
  - Full blood count increased [None]
  - General physical health deterioration [None]

NARRATIVE: CASE EVENT DATE: 20200101
